FAERS Safety Report 5336252-3 (Version None)
Quarter: 2007Q2

REPORT INFORMATION
  Report Type: 
  Country: None (occurrence: None)
  Receive Date: 20070315
  Receipt Date: 20070201
  Transmission Date: 20071010
  Serious: Yes (Other)
  Sender: FDA-Public Use
  Company Number: BDI-009107

PATIENT
  Sex: Female
  Weight: 67 kg

DRUGS (2)
  1. MULTIHANCE [Suspect]
     Indication: BACK PAIN
     Dosage: 13 ML ONCE IV
     Route: 042
     Dates: start: 20070130, end: 20070130
  2. MULTIHANCE [Suspect]
     Indication: NUCLEAR MAGNETIC RESONANCE IMAGING
     Dosage: 13 ML ONCE IV
     Route: 042
     Dates: start: 20070130, end: 20070130

REACTIONS (1)
  - ANAPHYLACTOID REACTION [None]
